FAERS Safety Report 23621768 (Version 1)
Quarter: 2024Q1

REPORT INFORMATION
  Report Type: Spontaneous
  Country: US (occurrence: None)
  Receive Date: 20240311
  Receipt Date: 20240311
  Transmission Date: 20240410
  Serious: Yes (Hospitalization)
  Sender: FDA-Public Use
  Company Number: None

PATIENT
  Age: 74 Year
  Sex: Male

DRUGS (19)
  1. AUSTEDO [Suspect]
     Active Substance: DEUTETRABENAZINE
     Indication: Tardive dyskinesia
     Dosage: FREQUENCY : TWICE A DAY;?
     Route: 048
     Dates: start: 20231005
  2. ALBUTEROL [Concomitant]
     Active Substance: ALBUTEROL
  3. buprenorphine/NALOXONE 8-2 SL FILM [Concomitant]
  4. CLOBETASOL PROPIONATE [Concomitant]
     Active Substance: CLOBETASOL PROPIONATE
  5. Docusate sodium 100 mg caps [Concomitant]
  6. ELIQUIS [Concomitant]
     Active Substance: APIXABAN
  7. Fedoterodine 8 mg ER [Concomitant]
  8. FINASTERIDE [Concomitant]
     Active Substance: FINASTERIDE
  9. FLUOXETINE [Concomitant]
     Active Substance: FLUOXETINE HYDROCHLORIDE
  10. Fluphenazine Dec 25 mg/ml  inj [Concomitant]
  11. Gabapentin 800 mg tabs [Concomitant]
  12. lisinopril 10 mg tabs [Concomitant]
  13. METOPROLOL [Concomitant]
     Active Substance: METOPROLOL
  14. Montelukast 10 mg tabs [Concomitant]
  15. Myrbetriq  50 mg tabs [Concomitant]
  16. OMEPRAZOLE [Concomitant]
     Active Substance: OMEPRAZOLE
  17. SIMVASTATIN [Concomitant]
     Active Substance: SIMVASTATIN
  18. Tamulosin 0.4 mg capsules [Concomitant]
  19. Warfarin 1 mg tablets [Concomitant]

REACTIONS (2)
  - Fall [None]
  - Lower limb fracture [None]

NARRATIVE: CASE EVENT DATE: 20240219
